FAERS Safety Report 22995232 (Version 3)
Quarter: 2024Q2

REPORT INFORMATION
  Report Type: Spontaneous
  Country: US (occurrence: US)
  Receive Date: 20230927
  Receipt Date: 20240516
  Transmission Date: 20240716
  Serious: Yes (Other)
  Sender: FDA-Public Use
  Company Number: US-002147023-NVSC2023US204999

PATIENT
  Age: 59 Year
  Sex: Female

DRUGS (21)
  1. PIQRAY [Suspect]
     Active Substance: ALPELISIB
     Indication: Breast cancer female
     Dosage: 500 MG, QD
     Route: 065
     Dates: start: 202308
  2. PIQRAY [Suspect]
     Active Substance: ALPELISIB
     Dosage: 500 MG, QD
     Route: 048
     Dates: start: 20230823
  3. PIQRAY [Suspect]
     Active Substance: ALPELISIB
     Dosage: 250 MG, QD (200 MG X1-50 MG X 1 TABLET, 56 EACH, TOOK 2 TABLETS BY MOUTH ONCE DAILY)
     Route: 048
     Dates: start: 20231108
  4. ZYRTEC [Concomitant]
     Active Substance: CETIRIZINE HYDROCHLORIDE
     Indication: Product used for unknown indication
     Dosage: UNK
     Route: 065
  5. ZOFRAN [Concomitant]
     Active Substance: ONDANSETRON HYDROCHLORIDE
     Indication: Product used for unknown indication
     Dosage: UNK
     Route: 065
  6. PROMETHAZINE [Concomitant]
     Active Substance: PROMETHAZINE HYDROCHLORIDE
     Indication: Product used for unknown indication
     Dosage: (TAKE 1 TABLET (25 MG TOTAL) BY MOUTH EVERY 6 (SIX) HOURS AS NEEDED FOR NAUSEA OR VOMITING.)
     Route: 065
     Dates: start: 20230426
  7. ALBUTEROL [Concomitant]
     Active Substance: ALBUTEROL
     Indication: Product used for unknown indication
     Dosage: (90 MCG/ ACTUATION, HISTORICAL MED)
     Route: 065
     Dates: start: 20230122
  8. PROTONIX [Concomitant]
     Active Substance: PANTOPRAZOLE SODIUM
     Indication: Product used for unknown indication
     Dosage: UNK
     Route: 065
  9. VITAMIN D NOS [Concomitant]
     Active Substance: VITAMIN D NOS
     Indication: Product used for unknown indication
     Dosage: UNK
     Route: 065
  10. VITAMIN B12 [Concomitant]
     Active Substance: CYANOCOBALAMIN
     Indication: Product used for unknown indication
     Dosage: UNK
     Route: 065
  11. FOLIC ACID [Concomitant]
     Active Substance: FOLIC ACID
     Indication: Product used for unknown indication
     Dosage: UNK
     Route: 065
  12. IMMODIN [Concomitant]
     Indication: Product used for unknown indication
     Dosage: UNK
     Route: 065
  13. MOMETASONE [Concomitant]
     Active Substance: MOMETASONE
     Indication: Product used for unknown indication
     Dosage: 45 G (APPLY 1 APPLICATION TOPICALLY DAILY, APPLY TO ITCHY PATCHES)
     Route: 061
     Dates: start: 20230404
  14. CETIRIZINE [Concomitant]
     Active Substance: CETIRIZINE HYDROCHLORIDE
     Indication: Product used for unknown indication
     Dosage: 10 MG (TAKE 1 TABLET (10 MG TOTAL) BY MOUTH DAILY)
     Route: 048
     Dates: start: 20230816
  15. DENOSUMAB [Concomitant]
     Active Substance: DENOSUMAB
     Indication: Product used for unknown indication
     Dosage: (120 MG/1.7 ML, 120 MG UNDER THE SKIN)
     Route: 058
     Dates: start: 20210126
  16. FLUTICASONE PROPIONATE [Concomitant]
     Active Substance: FLUTICASONE PROPIONATE
     Indication: Product used for unknown indication
     Dosage: (50 MCG/ ACTUATION NASAL SPRAY)
     Route: 065
     Dates: start: 20230723
  17. IBUPROFEN [Concomitant]
     Active Substance: IBUPROFEN
     Indication: Product used for unknown indication
     Dosage: 200 MG (BY MOUTH)
     Route: 048
  18. LOPERAMIDE [Concomitant]
     Active Substance: LOPERAMIDE
     Indication: Product used for unknown indication
     Route: 065
  19. METFORMIN [Concomitant]
     Active Substance: METFORMIN HYDROCHLORIDE
     Indication: Product used for unknown indication
     Dosage: TAKE 1 TAB IN THE AM WITH BREAKFAST, AND 2 TABS IN THE PM WITH DINNER)
     Route: 065
  20. ONDANSETRON [Concomitant]
     Active Substance: ONDANSETRON
     Indication: Product used for unknown indication
     Dosage: 4 MG
     Route: 065
  21. PANTOPRAZOLE [Concomitant]
     Active Substance: PANTOPRAZOLE
     Indication: Product used for unknown indication
     Dosage: 40 MG, EC
     Route: 065
     Dates: start: 20221014

REACTIONS (2)
  - Blood glucose increased [Unknown]
  - Overdose [Unknown]

NARRATIVE: CASE EVENT DATE: 20230831
